FAERS Safety Report 7167320-1 (Version None)
Quarter: 2010Q4

REPORT INFORMATION
  Report Type: 
  Country: None (occurrence: None)
  Receive Date: 20101216
  Receipt Date: 20101214
  Transmission Date: 20110411
  Serious: Yes (Other)
  Sender: FDA-Public Use
  Company Number: JP-PFIZER INC-2010171046

PATIENT
  Age: 83 Year
  Sex: Male

DRUGS (2)
  1. NORVASC [Suspect]
  2. NORVASC [Suspect]
     Dosage: UNK

REACTIONS (2)
  - IRRITABLE BOWEL SYNDROME [None]
  - PLATELET COUNT DECREASED [None]
